FAERS Safety Report 7978761-4 (Version None)
Quarter: 2011Q4

REPORT INFORMATION
  Report Type: 
  Country: None (occurrence: None)
  Receive Date: 20111207
  Receipt Date: 20111123
  Transmission Date: 20120403
  Serious: Yes (Life-Threatening, Hospitalization, Other)
  Sender: FDA-Public Use
  Company Number: 2011MA016827

PATIENT
  Sex: Female
  Weight: 75.7507 kg

DRUGS (16)
  1. ALBUTEROL [Concomitant]
  2. DIOVAN [Concomitant]
  3. AMBIEN [Concomitant]
  4. POTASSIUM [Concomitant]
  5. DIGOXIN [Suspect]
     Indication: HEART VALVE OPERATION
     Dosage: 0.25 MG;QID;PO
     Route: 048
     Dates: start: 19940901, end: 20080520
  6. COUMADIN [Concomitant]
  7. PLAVIX [Concomitant]
  8. ASPIRIN [Concomitant]
  9. TRICOR [Concomitant]
  10. COMBIVENT [Concomitant]
  11. NEXIUM [Concomitant]
  12. CELEXA [Concomitant]
  13. COREG [Concomitant]
  14. LASIX [Concomitant]
  15. LIBRIUM [Concomitant]
  16. EMPIRIC ANTIBIOTIC THERAPY [Concomitant]

REACTIONS (30)
  - TOXICITY TO VARIOUS AGENTS [None]
  - PRESYNCOPE [None]
  - ARTERIOSCLEROSIS [None]
  - CARDIOACTIVE DRUG LEVEL BELOW THERAPEUTIC [None]
  - INJURY [None]
  - DIZZINESS [None]
  - CONFUSIONAL STATE [None]
  - SOMNOLENCE [None]
  - CARDIAC PACEMAKER REPLACEMENT [None]
  - CORONARY ARTERY DISEASE [None]
  - CHRONIC OBSTRUCTIVE PULMONARY DISEASE [None]
  - SYNCOPE [None]
  - CARDIOMEGALY [None]
  - CEREBROVASCULAR ACCIDENT [None]
  - DYSLIPIDAEMIA [None]
  - UNEVALUABLE EVENT [None]
  - MITRAL VALVE DISEASE [None]
  - ANXIETY [None]
  - SURGERY [None]
  - DIVERTICULUM [None]
  - SICK SINUS SYNDROME [None]
  - LOBAR PNEUMONIA [None]
  - ANAEMIA [None]
  - ECONOMIC PROBLEM [None]
  - ARTHRITIS [None]
  - HYPOTENSION [None]
  - LACUNAR INFARCTION [None]
  - PAIN [None]
  - GASTROINTESTINAL HAEMORRHAGE [None]
  - CARDIOACTIVE DRUG LEVEL ABOVE THERAPEUTIC [None]
